FAERS Safety Report 8339195-6 (Version None)
Quarter: 2012Q2

REPORT INFORMATION
  Report Type: 
  Country: None (occurrence: None)
  Receive Date: 20120502
  Receipt Date: 20120418
  Transmission Date: 20120825
  Serious: Yes (Death, Hospitalization)
  Sender: FDA-Public Use
  Company Number: CN-JNJFOC-20110404900

PATIENT
  Sex: Male
  Weight: 60 kg

DRUGS (2)
  1. DACOGEN [Suspect]
     Indication: MYELOID LEUKAEMIA
     Dosage: 40 MG, IN 1 DAY, INTRAVENOUS
     Route: 042
     Dates: start: 20110324, end: 20110324
  2. DACOGEN [Suspect]
     Indication: MYELOID LEUKAEMIA
     Dosage: 40 MG, IN 1 DAY, INTRAVENOUS
     Route: 042
     Dates: start: 20110327, end: 20110327

REACTIONS (1)
  - INFECTION [None]
